FAERS Safety Report 7336168-7 (Version None)
Quarter: 2011Q1

REPORT INFORMATION
  Report Type: 
  Country: None (occurrence: None)
  Receive Date: 20110307
  Receipt Date: 20110224
  Transmission Date: 20110831
  Serious: Yes (Death, Other)
  Sender: FDA-Public Use
  Company Number: JP-CELGENEUS-087-21880-11012828

PATIENT
  Sex: Male

DRUGS (7)
  1. ASPARA POTASSIUM [Concomitant]
     Dosage: 900 MILLIGRAM
     Route: 048
  2. MS CONTIN [Concomitant]
     Dosage: 60 MILLIGRAM
     Route: 048
  3. METHYCOBAL [Concomitant]
     Dosage: 1500 MICROGRAM
     Route: 048
  4. REVLIMID [Suspect]
     Indication: MULTIPLE MYELOMA
     Dosage: 25 MILLIGRAM
     Route: 048
     Dates: start: 20101122, end: 20101210
  5. LENADEX [Suspect]
     Indication: MULTIPLE MYELOMA
     Dosage: 40 MILLIGRAM
     Route: 048
     Dates: start: 20101122, end: 20101125
  6. GASTER D [Concomitant]
     Indication: PROPHYLAXIS
     Dosage: 20 MILLIGRAM
     Route: 048
  7. MYSLEE [Concomitant]
     Indication: PROPHYLAXIS
     Dosage: 10 MILLIGRAM
     Route: 048

REACTIONS (2)
  - PLATELET COUNT DECREASED [None]
  - INFECTION [None]
